FAERS Safety Report 24564166 (Version 1)
Quarter: 2024Q4

REPORT INFORMATION
  Report Type: Spontaneous
  Country: US (occurrence: US)
  Receive Date: 20241030
  Receipt Date: 20241030
  Transmission Date: 20250115
  Serious: Yes (Other)
  Sender: AUROBINDO
  Company Number: US-MLMSERVICE-20241010-PI223159-00128-1

PATIENT
  Age: 57 Year
  Sex: Male

DRUGS (12)
  1. CYCLOPHOSPHAMIDE [Suspect]
     Active Substance: CYCLOPHOSPHAMIDE
     Indication: Plasmablastic lymphoma
     Dosage: DOSE-ADJUSTED, 6 CYCLES
     Route: 065
  2. CYCLOPHOSPHAMIDE [Suspect]
     Active Substance: CYCLOPHOSPHAMIDE
     Indication: Nasal sinus cancer
  3. METHOTREXATE [Suspect]
     Active Substance: METHOTREXATE
     Indication: Plasmablastic lymphoma
     Dosage: 2 TREATMENTS
     Route: 037
  4. METHOTREXATE [Suspect]
     Active Substance: METHOTREXATE
     Indication: Nasal sinus cancer
  5. PREDNISONE [Suspect]
     Active Substance: PREDNISONE
     Indication: Plasmablastic lymphoma
     Dosage: DOSE-ADJUSTED, 6 CYCLES
     Route: 065
  6. PREDNISONE [Suspect]
     Active Substance: PREDNISONE
     Indication: Nasal sinus cancer
  7. DOXORUBICIN [Suspect]
     Active Substance: DOXORUBICIN
     Indication: Plasmablastic lymphoma
     Dosage: DOSE-ADJUSTED, 6 CYCLES
     Route: 065
  8. DOXORUBICIN [Suspect]
     Active Substance: DOXORUBICIN
     Indication: Nasal sinus cancer
  9. ETOPOSIDE [Suspect]
     Active Substance: ETOPOSIDE
     Indication: Plasmablastic lymphoma
     Dosage: DOSE-ADJUSTED, 6 CYCLES
     Route: 065
  10. ETOPOSIDE [Suspect]
     Active Substance: ETOPOSIDE
     Indication: Nasal sinus cancer
  11. VINCRISTINE [Suspect]
     Active Substance: VINCRISTINE
     Indication: Plasmablastic lymphoma
     Dosage: DOSE-ADJUSTED, 6 CYCLES
     Route: 065
  12. VINCRISTINE [Suspect]
     Active Substance: VINCRISTINE
     Indication: Nasal sinus cancer

REACTIONS (1)
  - Neuropathy peripheral [Unknown]
